FAERS Safety Report 16482750 (Version 5)
Quarter: 2020Q2

REPORT INFORMATION
  Report Type: Report from Study
  Country: CO (occurrence: CO)
  Receive Date: 20190627
  Receipt Date: 20200616
  Transmission Date: 20200713
  Serious: Yes (Hospitalization)
  Sender: FDA-Public Use
  Company Number: PHHY2019CO143228

PATIENT
  Age: 8 Year
  Sex: Female

DRUGS (3)
  1. JADENU [Suspect]
     Active Substance: DEFERASIROX
     Indication: THALASSAEMIA
     Dosage: 360 MG, QD
     Route: 048
     Dates: start: 20181016
  2. CAPTOPRIL. [Concomitant]
     Active Substance: CAPTOPRIL
     Indication: PRODUCT USED FOR UNKNOWN INDICATION
     Dosage: UNK
     Route: 065
  3. JADENU [Suspect]
     Active Substance: DEFERASIROX
     Dosage: 540 MG, QD
     Route: 048
     Dates: start: 20181016

REACTIONS (13)
  - Haemoglobin decreased [Unknown]
  - Asthenia [Unknown]
  - Disease recurrence [Unknown]
  - Pyrexia [Unknown]
  - Product use issue [Unknown]
  - Thalassaemia [Unknown]
  - Urinary tract infection [Unknown]
  - Bone pain [Unknown]
  - Chromaturia [Unknown]
  - Laboratory test abnormal [Unknown]
  - Sickle cell anaemia with crisis [Unknown]
  - Pain [Unknown]
  - Influenza [Unknown]

NARRATIVE: CASE EVENT DATE: 201901
